FAERS Safety Report 10020873 (Version 2)
Quarter: 2014Q2

REPORT INFORMATION
  Report Type: Report from Study
  Country: DE (occurrence: DE)
  Receive Date: 20140319
  Receipt Date: 20140606
  Transmission Date: 20141212
  Serious: Yes (Other)
  Sender: FDA-Public Use
  Company Number: DE-CELGENEUS-062-50794-14030511

PATIENT
  Age: 79 Year
  Sex: Male
  Weight: 81 kg

DRUGS (11)
  1. VIDAZA [Suspect]
     Indication: MYELODYSPLASTIC SYNDROME
     Route: 041
     Dates: start: 20131204
  2. ENALAPRIL [Concomitant]
     Indication: HYPERTENSION
     Route: 065
     Dates: start: 2010
  3. BISOPROLOL [Concomitant]
     Indication: HYPERTENSION
     Route: 065
     Dates: start: 2010
  4. ACICLOVIR [Concomitant]
     Indication: INFECTION PROPHYLAXIS
     Dosage: 400 MILLIGRAM
     Route: 065
     Dates: start: 20131204
  5. AMPHOTERICIN B [Concomitant]
     Indication: INFECTION PROPHYLAXIS
     Dosage: 4
     Route: 065
     Dates: start: 20131204
  6. COTRIMOXAZOLE [Concomitant]
     Indication: INFECTION PROPHYLAXIS
     Dosage: 2 TABLET
     Route: 065
     Dates: start: 20131204
  7. GRANISETRON [Concomitant]
     Indication: ANTIEMETIC SUPPORTIVE CARE
     Route: 041
     Dates: start: 20131204
  8. ONDANSETRON [Concomitant]
     Indication: ANTIEMETIC SUPPORTIVE CARE
     Route: 065
     Dates: start: 20131204
  9. DIMENHYDRINAT [Concomitant]
     Indication: ANTIEMETIC SUPPORTIVE CARE
     Route: 065
     Dates: start: 20131204
  10. ALLOPURINOL [Concomitant]
     Indication: HYPERURICAEMIA
     Dosage: 300 MILLIGRAM
     Route: 065
     Dates: start: 20131218
  11. ISOSORBIDMONONITRAT [Concomitant]
     Indication: HYPERTENSION
     Route: 065
     Dates: start: 2010

REACTIONS (1)
  - Hyponatraemia [Recovered/Resolved]
